FAERS Safety Report 7996932-8 (Version None)
Quarter: 2011Q4

REPORT INFORMATION
  Report Type: 
  Country: None (occurrence: None)
  Receive Date: 20111216
  Receipt Date: 20111209
  Transmission Date: 20120403
  Serious: Yes (Hospitalization)
  Sender: FDA-Public Use
  Company Number: 127407

PATIENT
  Age: 19 Month
  Sex: Female

DRUGS (2)
  1. CISPLATIN [Suspect]
     Indication: BRAIN NEOPLASM MALIGNANT
     Dosage: 3.5MG/KG
  2. CARBOPLATIN [Suspect]
     Indication: BRAIN NEOPLASM MALIGNANT
     Dosage: 17 MG/KG/DAY

REACTIONS (6)
  - DEAFNESS [None]
  - PAPILLOEDEMA [None]
  - PROGRESSIVE MULTIFOCAL LEUKOENCEPHALOPATHY [None]
  - SEPSIS [None]
  - EYELID PTOSIS [None]
  - STRABISMUS [None]
